FAERS Safety Report 7569346-2 (Version None)
Quarter: 2011Q2

REPORT INFORMATION
  Report Type: 
  Country: None (occurrence: None)
  Receive Date: 20110623
  Receipt Date: 20110614
  Transmission Date: 20111010
  Serious: Yes (Hospitalization, Other)
  Sender: FDA-Public Use
  Company Number: US-ASTRAZENECA-2010SE43439

PATIENT

DRUGS (1)
  1. SEROQUEL [Suspect]
     Route: 048
     Dates: start: 20100501

REACTIONS (15)
  - SPINAL FUSION SURGERY [None]
  - HERNIA REPAIR [None]
  - ARTHRALGIA [None]
  - HERNIA [None]
  - BACK PAIN [None]
  - ARTHRITIS [None]
  - JOINT SWELLING [None]
  - MUSCLE SPASMS [None]
  - BRONCHITIS [None]
  - CARTILAGE INJURY [None]
  - MENISCUS LESION [None]
  - INTERVERTEBRAL DISC DEGENERATION [None]
  - DRUG DOSE OMISSION [None]
  - IMPAIRED WORK ABILITY [None]
  - GAIT DISTURBANCE [None]
